FAERS Safety Report 5649597-4 (Version None)
Quarter: 2008Q1

REPORT INFORMATION
  Report Type: 
  Country: None (occurrence: None)
  Receive Date: 20080131
  Receipt Date: 20071121
  Transmission Date: 20080703
  Serious: No
  Sender: FDA-Public Use
  Company Number: 2006PV024427

PATIENT
  Age: 70 Year
  Sex: Female
  Weight: 70.3 kg

DRUGS (5)
  1. EXENATIDE(EXENATIDE) PEN,DISPOSABLE [Suspect]
     Indication: TYPE 2 DIABETES MELLITUS
     Dosage: 5 UG, 2/D, SUBCUTANEOUS ; 10 UG, 2/D, SUBCUTANEOUS
     Route: 058
     Dates: start: 20050601, end: 20050101
  2. EXENATIDE(EXENATIDE) PEN,DISPOSABLE [Suspect]
     Indication: TYPE 2 DIABETES MELLITUS
     Dosage: 5 UG, 2/D, SUBCUTANEOUS ; 10 UG, 2/D, SUBCUTANEOUS
     Route: 058
     Dates: start: 20050101
  3. EXENATIDE(EXENATIDE) PEN,DISPOSABLE [Suspect]
  4. GLUCOPHAGE ^BRISTOL-MYERS SQUIBB^ PILL (EXCEPT TABLETS) [Concomitant]
  5. GLIPIZDE W/METFORMIN (GLIPIZIDE, METFORMIN) [Concomitant]

REACTIONS (3)
  - DECREASED APPETITE [None]
  - WEIGHT CONTROL [None]
  - WEIGHT DECREASED [None]
